FAERS Safety Report 5247321-0 (Version None)
Quarter: 2007Q1

REPORT INFORMATION
  Report Type: 
  Country: None (occurrence: None)
  Receive Date: 20070223
  Receipt Date: 20070223
  Transmission Date: 20070707
  Serious: Yes (Hospitalization)
  Sender: FDA-Public Use
  Company Number: None

PATIENT
  Age: 35 Year
  Sex: Female
  Weight: 108.8633 kg

DRUGS (2)
  1. PREDNISOLONE [Suspect]
     Indication: MULTIPLE SCLEROSIS
     Dosage: 1 - 3X A DAY TWICE 1-2XDAY TWI  1-1 DAY 2DAYS PO
     Route: 048
     Dates: start: 20070212, end: 20070218
  2. PREDNISONE [Concomitant]

REACTIONS (1)
  - MENTAL IMPAIRMENT [None]
